FAERS Safety Report 21632103 (Version 5)
Quarter: 2023Q1

REPORT INFORMATION
  Report Type: Report from Study
  Country: US (occurrence: US)
  Receive Date: 20221123
  Receipt Date: 20230222
  Transmission Date: 20230418
  Serious: No
  Sender: FDA-Public Use
  Company Number: US-002147023-NVSC2022US262144

PATIENT
  Sex: Male

DRUGS (1)
  1. TABRECTA [Suspect]
     Active Substance: CAPMATINIB
     Indication: Lung neoplasm malignant
     Dosage: 400 MG, BID
     Route: 048
     Dates: start: 20221028

REACTIONS (9)
  - Swelling face [Not Recovered/Not Resolved]
  - Lacrimation increased [Unknown]
  - Increased appetite [Unknown]
  - Weight increased [Unknown]
  - Lethargy [Unknown]
  - Peripheral swelling [Not Recovered/Not Resolved]
  - Asthenia [Unknown]
  - Blood albumin decreased [Unknown]
  - Fatigue [Unknown]
